FAERS Safety Report 9278753 (Version 1)
Quarter: 2013Q2

REPORT INFORMATION
  Report Type: Spontaneous
  Country: FR (occurrence: FR)
  Receive Date: 20130508
  Receipt Date: 20130508
  Transmission Date: 20140414
  Serious: Yes (Hospitalization, Other)
  Sender: FDA-Public Use
  Company Number: FR-ASTRAZENECA-2013SE30976

PATIENT
  Sex: Female

DRUGS (2)
  1. XEROQUEL [Suspect]
     Indication: BIPOLAR DISORDER
     Route: 048
     Dates: start: 201112, end: 2012
  2. XEROQUEL [Suspect]
     Indication: BIPOLAR DISORDER
     Route: 048
     Dates: start: 2012

REACTIONS (3)
  - Mania [Not Recovered/Not Resolved]
  - Homicidal ideation [Unknown]
  - Disinhibition [Not Recovered/Not Resolved]
